FAERS Safety Report 9665129 (Version 1)
Quarter: 2013Q4

REPORT INFORMATION
  Report Type: Spontaneous
  Country: US (occurrence: US)
  Receive Date: 20131101
  Receipt Date: 20131101
  Transmission Date: 20140711
  Serious: No
  Sender: FDA-Public Use
  Company Number: US-PFIZER INC-2013313145

PATIENT
  Age: 54 Year
  Sex: Female
  Weight: 65.76 kg

DRUGS (4)
  1. LYRICA [Suspect]
     Indication: FIBROMYALGIA
     Dosage: 150 MG, 3X/DAY
     Route: 048
  2. ATORVASTATIN [Concomitant]
     Dosage: UNK, 1X/DAY
  3. TRAMADOL [Concomitant]
     Dosage: 50 MG, 3X/DAY
  4. LISINOPRIL [Concomitant]
     Dosage: 40 MG, 1X/DAY

REACTIONS (2)
  - Pain in extremity [Unknown]
  - Grip strength decreased [Unknown]
